FAERS Safety Report 25364076 (Version 1)
Quarter: 2025Q2

REPORT INFORMATION
  Report Type: Report from Study
  Country: KW (occurrence: KW)
  Receive Date: 20250527
  Receipt Date: 20250527
  Transmission Date: 20250716
  Serious: Yes (Hospitalization)
  Sender: SANDOZ
  Company Number: KW-SANDOZ-SDZ2025KW036082

PATIENT
  Age: 51 Year
  Sex: Female

DRUGS (1)
  1. HYRIMOZ [Suspect]
     Active Substance: ADALIMUMAB-ADAZ
     Indication: Rheumatoid arthritis
     Dosage: 40 MG, Q2W
     Route: 058
     Dates: start: 20241219, end: 202501

REACTIONS (5)
  - Hypersensitivity [Unknown]
  - Acne [Unknown]
  - Administration site erythema [Unknown]
  - Administration site swelling [Unknown]
  - Therapy change [Unknown]

NARRATIVE: CASE EVENT DATE: 20250101
